FAERS Safety Report 12776647 (Version 1)
Quarter: 2016Q3

REPORT INFORMATION
  Report Type: Report from Study
  Country: DE (occurrence: DE)
  Receive Date: 20160923
  Receipt Date: 20160923
  Transmission Date: 20161109
  Serious: Yes (Hospitalization)
  Sender: FDA-Public Use
  Company Number: US-ASTRAZENECA-2016SF00974

PATIENT
  Sex: Male

DRUGS (6)
  1. SYNAGIS [Suspect]
     Active Substance: PALIVIZUMAB
     Indication: ANTIVIRAL PROPHYLAXIS
     Dosage: 117 MG
     Route: 030
     Dates: start: 20081002, end: 20081002
  2. SYNAGIS [Suspect]
     Active Substance: PALIVIZUMAB
     Indication: ANTIVIRAL PROPHYLAXIS
     Dosage: 139 MG
     Route: 030
     Dates: start: 20090316, end: 20090316
  3. SYNAGIS [Suspect]
     Active Substance: PALIVIZUMAB
     Indication: ANTIVIRAL PROPHYLAXIS
     Dosage: 122 MG
     Route: 030
     Dates: start: 20081203, end: 20081203
  4. SYNAGIS [Suspect]
     Active Substance: PALIVIZUMAB
     Indication: ANTIVIRAL PROPHYLAXIS
     Dosage: 125 MG
     Route: 030
     Dates: start: 20090105, end: 20090105
  5. SYNAGIS [Suspect]
     Active Substance: PALIVIZUMAB
     Indication: ANTIVIRAL PROPHYLAXIS
     Dosage: 120 MG
     Route: 030
     Dates: start: 20081030, end: 20081030
  6. SYNAGIS [Suspect]
     Active Substance: PALIVIZUMAB
     Indication: ANTIVIRAL PROPHYLAXIS
     Dosage: 130 MG
     Route: 030
     Dates: start: 20090213, end: 20090213

REACTIONS (6)
  - Gastroenteritis [Unknown]
  - Otitis media [Unknown]
  - Febrile convulsion [Unknown]
  - Bronchitis [Unknown]
  - Pyrexia [Unknown]
  - Febrile infection [Unknown]

NARRATIVE: CASE EVENT DATE: 200811
